FAERS Safety Report 6693654-0 (Version None)
Quarter: 2010Q2

REPORT INFORMATION
  Report Type: 
  Country: None (occurrence: None)
  Receive Date: 20100423
  Receipt Date: 20100409
  Transmission Date: 20101027
  Serious: Yes (Other)
  Sender: FDA-Public Use
  Company Number: DE-RANBAXY-2010RR-33231

PATIENT
  Age: 67 Year
  Sex: Male
  Weight: 101 kg

DRUGS (3)
  1. SIMVASTATIN [Suspect]
     Dosage: 1 DF, QD
     Route: 048
     Dates: start: 20090601
  2. PLAVIX [Suspect]
     Indication: CORONARY ARTERY DISEASE
     Dosage: 1 DF, QD
     Route: 048
     Dates: start: 20090601
  3. ASPIRIN [Suspect]
     Indication: ACUTE CORONARY SYNDROME
     Dosage: 1 DF, QD
     Route: 048
     Dates: start: 20090601

REACTIONS (1)
  - MUSCLE HAEMORRHAGE [None]
